FAERS Safety Report 9782561 (Version 1)
Quarter: 2013Q4

REPORT INFORMATION
  Report Type: Spontaneous
  Country: GB (occurrence: GB)
  Receive Date: 20131226
  Receipt Date: 20131226
  Transmission Date: 20140711
  Serious: Yes (Other)
  Sender: FDA-Public Use
  Company Number: GB-009507513-1312GBR010216

PATIENT
  Age: 84 Year
  Sex: Female

DRUGS (1)
  1. COSOPT 20 MG/ML + 5 MG/ML, EYE DROPS, SOLUTION [Suspect]
     Dosage: 1 GTT, UNK
     Route: 061
     Dates: start: 20131119, end: 20131202

REACTIONS (3)
  - Corneal abrasion [Unknown]
  - Conjunctival abrasion [Unknown]
  - Product physical issue [Unknown]
